FAERS Safety Report 11969217 (Version 1)
Quarter: 2016Q1

REPORT INFORMATION
  Report Type: Report from Study
  Country: US (occurrence: US)
  Receive Date: 20160128
  Receipt Date: 20160128
  Transmission Date: 20160526
  Serious: No
  Sender: FDA-Public Use
  Company Number: PHEH2013US021463

PATIENT
  Age: 52 Year
  Sex: Female

DRUGS (2)
  1. TASIGNA [Suspect]
     Active Substance: NILOTINIB
     Indication: CHRONIC MYELOID LEUKAEMIA
     Dosage: 150 MG, BID
     Route: 048
     Dates: start: 20130524
  2. TASIGNA [Suspect]
     Active Substance: NILOTINIB
     Dosage: 300 MG, EVERY 12 HOURS
     Route: 048

REACTIONS (3)
  - Insomnia [Unknown]
  - Stress at work [Unknown]
  - Alopecia [Unknown]

NARRATIVE: CASE EVENT DATE: 201308
